FAERS Safety Report 7048204-6 (Version None)
Quarter: 2010Q4

REPORT INFORMATION
  Report Type: 
  Country: None (occurrence: None)
  Receive Date: 20101014
  Receipt Date: 20101014
  Transmission Date: 20110411
  Serious: Yes (Hospitalization)
  Sender: FDA-Public Use
  Company Number: None

PATIENT
  Sex: Male
  Weight: 123.3784 kg

DRUGS (1)
  1. HUMIRA [Suspect]
     Indication: ANKYLOSING SPONDYLITIS
     Dosage: 40MG Q2WKS SQ
     Route: 058
     Dates: start: 20100310, end: 20100910

REACTIONS (4)
  - BLOOD CULTURE POSITIVE [None]
  - ENDOCARDITIS [None]
  - ENTEROCOCCUS TEST POSITIVE [None]
  - PYREXIA [None]
